FAERS Safety Report 4528306-6 (Version None)
Quarter: 2004Q4

REPORT INFORMATION
  Report Type: 
  Country: None (occurrence: None)
  Receive Date: 20041130
  Receipt Date: 20040908
  Transmission Date: 20050328
  Serious: No
  Sender: FDA-Public Use
  Company Number: 702272

PATIENT
  Age: 47 Year
  Sex: Male
  Weight: 125 kg

DRUGS (2)
  1. AMEVIVE [Suspect]
     Indication: PSORIASIS
     Dosage: 15 MG QW IM
     Route: 030
     Dates: end: 20040719
  2. EUCERIN CREME [Concomitant]

REACTIONS (2)
  - ALDOLASE INCREASED [None]
  - ASTHENIA [None]
